FAERS Safety Report 16994851 (Version 1)
Quarter: 2019Q4

REPORT INFORMATION
  Report Type: Spontaneous
  Country: FR (occurrence: FR)
  Receive Date: 20191105
  Receipt Date: 20191105
  Transmission Date: 20200122
  Serious: Yes (Other)
  Sender: FDA-Public Use
  Company Number: FR-CELGENEUS-FRA-20191100062

PATIENT
  Age: 85 Year
  Sex: Female
  Weight: 78 kg

DRUGS (1)
  1. VIDAZA [Suspect]
     Active Substance: AZACITIDINE
     Indication: MYELODYSPLASTIC SYNDROME
     Route: 058
     Dates: start: 20190715, end: 20191007

REACTIONS (1)
  - N-terminal prohormone brain natriuretic peptide increased [Not Recovered/Not Resolved]

NARRATIVE: CASE EVENT DATE: 20191009
